FAERS Safety Report 15634656 (Version 2)
Quarter: 2018Q4

REPORT INFORMATION
  Report Type: Report from Study
  Country: US (occurrence: US)
  Receive Date: 20181119
  Receipt Date: 20181130
  Transmission Date: 20190205
  Serious: Yes (Hospitalization)
  Sender: FDA-Public Use
  Company Number: US-ACTELION-A-NJ2018-181840

PATIENT
  Age: 71 Year
  Sex: Male

DRUGS (1)
  1. OPSUMIT [Suspect]
     Active Substance: MACITENTAN
     Indication: PULMONARY ARTERIAL HYPERTENSION
     Dosage: 10 MG, QD
     Route: 048
     Dates: end: 20181110

REACTIONS (13)
  - Fluid retention [Recovering/Resolving]
  - Condition aggravated [Recovering/Resolving]
  - Peripheral swelling [Recovering/Resolving]
  - Swelling face [Recovered/Resolved]
  - Pulmonary oedema [Recovered/Resolved]
  - Therapy non-responder [Unknown]
  - Dyspnoea [Recovering/Resolving]
  - Catheterisation cardiac [Unknown]
  - Swelling [Recovered/Resolved]
  - Hospitalisation [Unknown]
  - Ascites [Recovering/Resolving]
  - Pleural effusion [Recovering/Resolving]
  - Aspiration pleural cavity [Unknown]

NARRATIVE: CASE EVENT DATE: 201810
